FAERS Safety Report 8221903-6 (Version None)
Quarter: 2012Q1

REPORT INFORMATION
  Report Type: 
  Country: None (occurrence: None)
  Receive Date: 20120320
  Receipt Date: 20120308
  Transmission Date: 20120608
  Serious: Yes (Other)
  Sender: FDA-Public Use
  Company Number: CA-JNJFOC-20120304551

PATIENT
  Sex: Female
  Weight: 80 kg

DRUGS (4)
  1. REMICADE [Suspect]
     Indication: RHEUMATOID ARTHRITIS
     Route: 042
     Dates: start: 20010704
  2. ASPIRIN [Concomitant]
     Route: 065
  3. OXYCONTIN [Concomitant]
     Dosage: AS NECESSARY
     Route: 065
  4. CRESTOR [Concomitant]
     Route: 065

REACTIONS (1)
  - TRIGEMINAL NEURALGIA [None]
